FAERS Safety Report 7747253-X (Version None)
Quarter: 2011Q3

REPORT INFORMATION
  Report Type: 
  Country: None (occurrence: None)
  Receive Date: 20110913
  Receipt Date: 20110905
  Transmission Date: 20111222
  Serious: Yes (Other)
  Sender: FDA-Public Use
  Company Number: GB-SANOFI-AVENTIS-2011SA057573

PATIENT
  Age: 27 Year
  Sex: Female
  Weight: 86.17 kg

DRUGS (3)
  1. INSULIN [Concomitant]
     Indication: DIABETES MELLITUS
  2. GLIMEPIRIDE [Suspect]
     Route: 065
  3. GLIMEPIRIDE [Suspect]
     Route: 065

REACTIONS (3)
  - HAEMOGLOBIN DECREASED [None]
  - VAGINAL HAEMORRHAGE [None]
  - RECTAL HAEMORRHAGE [None]
